FAERS Safety Report 5951279-6 (Version None)
Quarter: 2008Q4

REPORT INFORMATION
  Report Type: 
  Country: None (occurrence: None)
  Receive Date: 20081113
  Receipt Date: 20081021
  Transmission Date: 20090506
  Serious: Yes (Hospitalization)
  Sender: FDA-Public Use
  Company Number: US-BRISTOL-MYERS SQUIBB COMPANY-14401442

PATIENT
  Age: 81 Year
  Sex: Male
  Weight: 74 kg

DRUGS (12)
  1. CETUXIMAB [Suspect]
     Indication: PROSTATE CANCER METASTATIC
     Dosage: INITIALLY TAKEN ON 11JUN2008 CYC:6
     Route: 042
     Dates: start: 20081014, end: 20081014
  2. NOVANTRONE [Suspect]
     Indication: PROSTATE CANCER METASTATIC
     Dosage: INITIALLY TAKEN ON 11JUN2008
     Route: 042
     Dates: start: 20081008, end: 20081008
  3. AMIODARONE HCL [Concomitant]
     Dosage: TAKEN 2 TABS
     Route: 048
  4. ATENOLOL [Concomitant]
     Route: 048
  5. COMPAZINE [Concomitant]
     Indication: NAUSEA
     Route: 048
  6. DRONABINOL [Concomitant]
     Route: 048
  7. MARINOL [Concomitant]
     Route: 048
  8. NITROGLYCERIN [Concomitant]
     Route: 060
  9. SENOKOT [Concomitant]
     Dosage: 1 DOSAGE FORM = 8.6-50MG
     Route: 048
  10. SLOW-MAG [Concomitant]
     Route: 048
  11. ZOLOFT [Concomitant]
     Route: 048
  12. HYDROCODONE BITARTRATE + ACETAMINOPHEN [Concomitant]
     Dosage: Q4-6HRS
     Route: 048

REACTIONS (2)
  - HYPOKALAEMIA [None]
  - SYNCOPE [None]
